FAERS Safety Report 12628434 (Version 2)
Quarter: 2016Q3

REPORT INFORMATION
  Report Type: Spontaneous
  Country: US (occurrence: US)
  Receive Date: 20160808
  Receipt Date: 20160922
  Transmission Date: 20161109
  Serious: No
  Sender: FDA-Public Use
  Company Number: US-JAZZ-2016-US-003910

PATIENT
  Sex: Female

DRUGS (24)
  1. XYREM [Suspect]
     Active Substance: SODIUM OXYBATE
     Indication: SOMNOLENCE
     Dosage: 2.25 G, BID
     Route: 048
     Dates: start: 201512, end: 201512
  2. XYREM [Suspect]
     Active Substance: SODIUM OXYBATE
     Dosage: 3 G, BID
     Route: 048
     Dates: start: 201512
  3. ADDERALL [Concomitant]
     Active Substance: AMPHETAMINE ASPARTATE\AMPHETAMINE SULFATE\DEXTROAMPHETAMINE SACCHARATE\DEXTROAMPHETAMINE SULFATE
  4. PROAIR HFA [Concomitant]
     Active Substance: ALBUTEROL SULFATE
  5. CLARITIN [Concomitant]
     Active Substance: LORATADINE
  6. RESTASIS [Concomitant]
     Active Substance: CYCLOSPORINE
  7. REQUIP [Suspect]
     Active Substance: ROPINIROLE HYDROCHLORIDE
     Indication: PRODUCT USED FOR UNKNOWN INDICATION
  8. METHOCARBAMOL. [Concomitant]
     Active Substance: METHOCARBAMOL
  9. ZOLOFT [Concomitant]
     Active Substance: SERTRALINE HYDROCHLORIDE
  10. CALTRATE WITH VITAMIN D [Concomitant]
     Active Substance: CALCIUM CARBONATE\CHOLECALCIFEROL
  11. TYLENOL ARTHRITIS PAIN [Concomitant]
     Active Substance: ACETAMINOPHEN
  12. FOLIC ACID. [Concomitant]
     Active Substance: FOLIC ACID
  13. BACLOFEN. [Concomitant]
     Active Substance: BACLOFEN
  14. VESICARE [Concomitant]
     Active Substance: SOLIFENACIN SUCCINATE
  15. MYRBETRIQ [Concomitant]
     Active Substance: MIRABEGRON
  16. VECTICAL [Concomitant]
     Active Substance: CALCITRIOL
  17. CELEBREX [Concomitant]
     Active Substance: CELECOXIB
  18. DOXEPIN [Concomitant]
     Active Substance: DOXEPIN
  19. MODAFINIL. [Concomitant]
     Active Substance: MODAFINIL
  20. SUBOXONE [Concomitant]
     Active Substance: BUPRENORPHINE HYDROCHLORIDE\NALOXONE HYDROCHLORIDE
  21. NEURONTIN [Concomitant]
     Active Substance: GABAPENTIN
  22. BETAMETHASONE. [Concomitant]
     Active Substance: BETAMETHASONE
  23. LUNESTA [Concomitant]
     Active Substance: ESZOPICLONE
  24. REMICADE [Concomitant]
     Active Substance: INFLIXIMAB

REACTIONS (3)
  - Therapeutic response unexpected [Unknown]
  - Drug ineffective [Unknown]
  - Pre-existing condition improved [Unknown]
